FAERS Safety Report 7500854-6 (Version None)
Quarter: 2011Q2

REPORT INFORMATION
  Report Type: 
  Country: None (occurrence: None)
  Receive Date: 20110524
  Receipt Date: 20110516
  Transmission Date: 20111010
  Serious: Yes (Other)
  Sender: FDA-Public Use
  Company Number: A0927535A

PATIENT
  Age: 62 Year
  Sex: Male

DRUGS (2)
  1. ASPIRIN [Concomitant]
  2. JALYN [Suspect]
     Indication: BENIGN PROSTATIC HYPERPLASIA
     Dosage: 1CAP PER DAY
     Route: 048
     Dates: start: 20110101, end: 20110515

REACTIONS (1)
  - EYE HAEMORRHAGE [None]
